FAERS Safety Report 5527186-X (Version None)
Quarter: 2007Q4

REPORT INFORMATION
  Report Type: 
  Country: None (occurrence: None)
  Receive Date: 20071121
  Receipt Date: 20071105
  Transmission Date: 20080405
  Serious: Yes (Death)
  Sender: FDA-Public Use
  Company Number: 8027836

PATIENT
  Age: 43 Year
  Sex: Female
  Weight: 92.5 kg

DRUGS (24)
  1. THEOPHYLLINE [Suspect]
  2. KADIAN [Suspect]
     Indication: BACK PAIN
     Dosage: 30 MG /D PO
     Route: 048
     Dates: start: 20070829, end: 20070801
  3. KADIAN [Suspect]
     Indication: BACK PAIN
  4. PERCOCET [Suspect]
  5. ZOLOFT [Suspect]
  6. VALIUM [Suspect]
  7. AMITRIPTLINE HCL [Suspect]
  8. TRAZODONE HCL [Suspect]
  9. PROPOXYPHENE HYDROCHLORIDE [Suspect]
  10. CYCLOBENZAPRINE HCL [Suspect]
  11. ZOLPIDEM TARTRATE [Suspect]
  12. OXYCODONE HCL [Suspect]
  13. ATROPINE [Suspect]
  14. NORDIAZEPAM [Suspect]
  15. NORTRIPTYLINE HCL [Suspect]
  16. CHLORDIAZEPOXIDE [Suspect]
  17. LYRICA [Concomitant]
  18. IMITREX [Concomitant]
  19. BENICAR [Concomitant]
  20. VYTORIN [Concomitant]
  21. PREVACID [Concomitant]
  22. LEVSIN [Concomitant]
  23. NAPROSYN [Concomitant]
  24. ATROPINE [Concomitant]

REACTIONS (16)
  - AORTIC VALVE CALCIFICATION [None]
  - AORTIC VALVE STENOSIS [None]
  - ASTHMA [None]
  - CARDIOMEGALY [None]
  - CONTUSION [None]
  - DEHYDRATION [None]
  - DRUG SCREEN POSITIVE [None]
  - HEPATIC STEATOSIS [None]
  - HEPATOMEGALY [None]
  - PULMONARY CONGESTION [None]
  - PULMONARY OEDEMA [None]
  - SKIN STRIAE [None]
  - SOMNOLENCE [None]
  - SPLEEN CONGESTION [None]
  - VARICOSE VEIN [None]
  - VOMITING [None]
